FAERS Safety Report 8967601 (Version 1)
Quarter: 2012Q4

REPORT INFORMATION
  Report Type: 
  Country: UY (occurrence: UY)
  Receive Date: 20121214
  Receipt Date: 20121214
  Transmission Date: 20130627
  Serious: Yes (Other)
  Sender: FDA-Public Use
  Company Number: UY-PFIZER INC-2012312940

PATIENT
  Age: 46 Year
  Sex: Female

DRUGS (2)
  1. SUTENT [Suspect]
     Indication: RENAL CELL CARCINOMA
     Dosage: 50 mg, 1x/day
     Dates: start: 201001
  2. SUTENT [Suspect]
     Dosage: 37.5 mg, 1x/day

REACTIONS (3)
  - Hypertriglyceridaemia [Recovered/Resolved]
  - Neutropenia [Unknown]
  - Hypothyroidism [Unknown]
